FAERS Safety Report 4434907-6 (Version None)
Quarter: 2004Q3

REPORT INFORMATION
  Report Type: 
  Country: None (occurrence: None)
  Receive Date: 20040726
  Receipt Date: 20040521
  Transmission Date: 20050211
  Serious: No
  Sender: FDA-Public Use
  Company Number: USA040566967

PATIENT
  Age: 83 Year
  Sex: Female
  Weight: 53 kg

DRUGS (9)
  1. FORTEO [Suspect]
     Indication: OSTEOPOROSIS
     Dosage: 20 UG DAY
     Dates: start: 20040101, end: 20040510
  2. SYNTHROID [Concomitant]
  3. POTASSIUM [Concomitant]
  4. PREVACID [Concomitant]
  5. ACCUPRIL [Concomitant]
  6. COUMADIN [Concomitant]
  7. TOPROL-XL [Concomitant]
  8. STARLIX [Concomitant]
  9. DEMADEX [Concomitant]

REACTIONS (2)
  - INSOMNIA [None]
  - VISUAL ACUITY REDUCED [None]
